FAERS Safety Report 15478614 (Version 2)
Quarter: 2018Q4

REPORT INFORMATION
  Report Type: Spontaneous
  Country: CL (occurrence: CL)
  Receive Date: 20181009
  Receipt Date: 20181017
  Transmission Date: 20190205
  Serious: No
  Sender: FDA-Public Use
  Company Number: CL-PROVELL PHARMACEUTICALS-2055842

PATIENT
  Age: 63 Year
  Sex: Female

DRUGS (2)
  1. EUTHYROX [Suspect]
     Active Substance: LEVOTHYROXINE SODIUM
     Indication: HYPOTHYROIDISM
     Dates: start: 2018
  2. EUTHYROX [Suspect]
     Active Substance: LEVOTHYROXINE SODIUM

REACTIONS (3)
  - Product packaging issue [None]
  - Tachycardia [Recovered/Resolved]
  - Overdose [None]

NARRATIVE: CASE EVENT DATE: 2018
